FAERS Safety Report 9328931 (Version 1)
Quarter: 2013Q2

REPORT INFORMATION
  Report Type: Spontaneous
  Country: US (occurrence: US)
  Receive Date: 20130604
  Receipt Date: 20130604
  Transmission Date: 20140414
  Serious: No
  Sender: FDA-Public Use
  Company Number: US-SANOFI-AVENTIS-2013SA039387

PATIENT
  Age: 73 Year
  Sex: Male

DRUGS (8)
  1. LANTUS SOLOSTAR [Suspect]
     Indication: TYPE 2 DIABETES MELLITUS
     Dosage: TAKEN FROM- 10 DAYS AGO DOSE:7 UNIT(S)
     Route: 065
  2. LANTUS SOLOSTAR [Suspect]
     Indication: TYPE 2 DIABETES MELLITUS
     Dosage: DOSE:14 UNIT(S)
     Route: 051
  3. SOLOSTAR [Suspect]
     Indication: TYPE 2 DIABETES MELLITUS
     Dosage: TAKEN FROM- 10 DAYS AGO
  4. SOLOSTAR [Suspect]
     Indication: TYPE 2 DIABETES MELLITUS
  5. METFORMIN [Concomitant]
  6. JANUVIA [Concomitant]
  7. ALL OTHER THERAPEUTIC PRODUCTS [Concomitant]
  8. GLIPIZIDE [Concomitant]

REACTIONS (5)
  - Insomnia [Unknown]
  - Injection site haemorrhage [Not Recovered/Not Resolved]
  - Blood glucose decreased [Unknown]
  - Incorrect storage of drug [Unknown]
  - Blood glucose increased [Not Recovered/Not Resolved]
